FAERS Safety Report 8199564-4 (Version None)
Quarter: 2012Q1

REPORT INFORMATION
  Report Type: 
  Country: None (occurrence: None)
  Receive Date: 20120310
  Receipt Date: 20111229
  Transmission Date: 20120608
  Serious: No
  Sender: FDA-Public Use
  Company Number: US-PFIZER INC-2011316860

PATIENT
  Sex: Female
  Weight: 90.703 kg

DRUGS (4)
  1. LIPITOR [Concomitant]
     Dosage: UNK
  2. ALLEGRA [Concomitant]
     Dosage: UNK
  3. XALKORI [Suspect]
     Indication: LUNG NEOPLASM MALIGNANT
     Dosage: 250 MG, 2X/DAY
     Route: 048
     Dates: start: 20100901
  4. DEMEROL [Concomitant]
     Dosage: UNK

REACTIONS (2)
  - BLOOD TEST ABNORMAL [None]
  - DYSPEPSIA [None]
